FAERS Safety Report 8136569-3 (Version None)
Quarter: 2012Q1

REPORT INFORMATION
  Report Type: 
  Country: None (occurrence: None)
  Receive Date: 20120214
  Receipt Date: 20120209
  Transmission Date: 20120608
  Serious: Yes (Hospitalization)
  Sender: FDA-Public Use
  Company Number: PHHY2011CA109092

PATIENT
  Sex: Female

DRUGS (5)
  1. VITAMIN D [Concomitant]
     Dosage: UNK UKN, DAILY
  2. ZOLEDRONOC ACID [Suspect]
     Indication: OSTEOPOROSIS
     Dosage: 5 MG, UNK
     Route: 042
     Dates: start: 20100921
  3. ZOLEDRONOC ACID [Suspect]
     Dosage: 5 MG, UNK
     Route: 042
     Dates: start: 20110701
  4. SYNTHROID [Concomitant]
  5. CALCIUM CARBONATE [Concomitant]
     Dosage: UNK UKN, DAILY

REACTIONS (3)
  - TIBIA FRACTURE [None]
  - TOOTHACHE [None]
  - INAPPROPRIATE SCHEDULE OF DRUG ADMINISTRATION [None]
